FAERS Safety Report 8773136 (Version 1)
Quarter: 2012Q4

REPORT INFORMATION
  Report Type: 
  Country: US (occurrence: US)
  Receive Date: 20120907
  Receipt Date: 20120907
  Transmission Date: 20130627
  Serious: Yes (Hospitalization, Other)
  Sender: FDA-Public Use
  Company Number: PHHY2012US075868

PATIENT
  Age: 50 Year
  Sex: Male

DRUGS (2)
  1. ENOXAPARIN SODIUM [Suspect]
     Dosage: 20 DF, UNK
     Route: 058
  2. QUETIAPINE [Suspect]
     Dosage: 8 DF, UNK

REACTIONS (4)
  - Unresponsive to stimuli [Recovered/Resolved]
  - Activated partial thromboplastin time prolonged [Recovered/Resolved]
  - Suicide attempt [Unknown]
  - Overdose [Unknown]
